FAERS Safety Report 21928563 (Version 1)
Quarter: 2023Q1

REPORT INFORMATION
  Report Type: Spontaneous
  Country: BE (occurrence: BE)
  Receive Date: 20230130
  Receipt Date: 20230130
  Transmission Date: 20230418
  Serious: No
  Sender: FDA-Public Use
  Company Number: BE-BAXTER-2023BAX011225

PATIENT
  Age: 76 Year
  Sex: Female

DRUGS (3)
  1. REGIOCIT [Suspect]
     Active Substance: SODIUM CHLORIDE\SODIUM CITRATE
     Indication: Continuous haemodiafiltration
     Dosage: 5000 ML BAG WAS INJECTED WITH DIALYSATE PUMP FLOW RATE 1000 CC/H
     Route: 065
     Dates: start: 20230120, end: 20230120
  2. MAGNESIUM CHLORIDE\POTASSIUM CHLORIDE\SODIUM BICARBONATE\SODIUM CHLORI [Suspect]
     Active Substance: MAGNESIUM CHLORIDE\POTASSIUM CHLORIDE\SODIUM BICARBONATE\SODIUM CHLORIDE\SODIUM PHOSPHATE, DIBASIC
     Indication: Continuous haemodiafiltration
     Dosage: UNK
     Route: 065
     Dates: start: 20230120, end: 20230120
  3. CALCIUM [Suspect]
     Active Substance: CALCIUM
     Dosage: UNK
     Route: 065
     Dates: start: 20230120

REACTIONS (3)
  - Blood calcium decreased [Recovered/Resolved]
  - Wrong product administered [Unknown]
  - Product packaging confusion [Unknown]

NARRATIVE: CASE EVENT DATE: 20230120
